FAERS Safety Report 19111145 (Version 2)
Quarter: 2021Q2

REPORT INFORMATION
  Report Type: Spontaneous
  Country: US (occurrence: US)
  Receive Date: 20210408
  Receipt Date: 20210524
  Transmission Date: 20210717
  Serious: No
  Sender: FDA-Public Use
  Company Number: US-PFIZER INC-2021184656

PATIENT
  Age: 62 Year
  Sex: Male

DRUGS (1)
  1. INLYTA [Suspect]
     Active Substance: AXITINIB
     Indication: RENAL CANCER
     Dosage: 5 MG
     Dates: start: 2021

REACTIONS (10)
  - Pain in extremity [Unknown]
  - Vomiting [Unknown]
  - Diarrhoea [Unknown]
  - Proctalgia [Unknown]
  - Oral pain [Unknown]
  - Abdominal pain upper [Unknown]
  - Penile burning sensation [Unknown]
  - Nausea [Unknown]
  - Abdominal pain [Unknown]
  - Lip pain [Unknown]

NARRATIVE: CASE EVENT DATE: 2021
